FAERS Safety Report 25080692 (Version 1)
Quarter: 2025Q1

REPORT INFORMATION
  Report Type: Spontaneous
  Country: US (occurrence: US)
  Receive Date: 20250315
  Receipt Date: 20250315
  Transmission Date: 20250409
  Serious: Yes (Death, Other)
  Sender: AMGEN
  Company Number: US-AMGEN-USASP2025045906

PATIENT

DRUGS (6)
  1. CARFILZOMIB [Suspect]
     Active Substance: CARFILZOMIB
     Indication: Immunosuppression
     Route: 065
  2. CARFILZOMIB [Suspect]
     Active Substance: CARFILZOMIB
     Indication: Off label use
  3. RITUXIMAB [Suspect]
     Active Substance: RITUXIMAB
     Indication: Lung transplant
     Route: 065
  4. RITUXIMAB [Suspect]
     Active Substance: RITUXIMAB
     Indication: Off label use
  5. PREDNISONE [Suspect]
     Active Substance: PREDNISONE
     Indication: Immunosuppression
     Route: 065
  6. BELATACEPT [Suspect]
     Active Substance: BELATACEPT
     Indication: Product used for unknown indication
     Route: 065

REACTIONS (34)
  - Death [Fatal]
  - Post transplant lymphoproliferative disorder [Fatal]
  - COVID-19 [Fatal]
  - Pneumonia pseudomonal [Fatal]
  - Lung transplant rejection [Unknown]
  - Human herpesvirus 6 encephalitis [Unknown]
  - Nocardiosis [Unknown]
  - Mycobacterium abscessus infection [Unknown]
  - Stenotrophomonas maltophilia pneumonia [Unknown]
  - Actinomycotic pulmonary infection [Unknown]
  - Osteomyelitis [Unknown]
  - Achromobacter infection [Unknown]
  - Enterococcal infection [Unknown]
  - Granulicatella infection [Unknown]
  - Bronchopulmonary aspergillosis [Unknown]
  - Clostridium difficile colitis [Unknown]
  - Pneumonia [Unknown]
  - Off label use [Unknown]
  - Varicella zoster virus infection [Unknown]
  - Rhinovirus infection [Unknown]
  - Mycoplasma infection [Unknown]
  - Ureaplasma infection [Unknown]
  - Klebsiella infection [Unknown]
  - Staphylococcal infection [Unknown]
  - Escherichia urinary tract infection [Unknown]
  - Penicillium infection [Unknown]
  - Candida infection [Unknown]
  - Bacterial infection [Unknown]
  - Skin infection [Unknown]
  - Soft tissue infection [Unknown]
  - Haematological infection [Unknown]
  - Postoperative wound infection [Unknown]
  - Respiratory syncytial virus infection [Unknown]
  - Cytomegalovirus infection [Unknown]
